FAERS Safety Report 10188604 (Version 1)
Quarter: 2014Q2

REPORT INFORMATION
  Report Type: Spontaneous
  Country: US (occurrence: US)
  Receive Date: 20140522
  Receipt Date: 20140522
  Transmission Date: 20141212
  Serious: Yes (Hospitalization)
  Sender: FDA-Public Use
  Company Number: US-B.I. PHARMACEUTICALS,INC./RIDGEFIELD-2014-BI-21451BP

PATIENT
  Sex: Female

DRUGS (13)
  1. GILOTRIF [Suspect]
     Indication: NON-SMALL CELL LUNG CANCER
     Dosage: 40 MG
     Route: 048
     Dates: start: 20140326, end: 20140422
  2. ATROVASTATIN [Concomitant]
     Indication: BLOOD CHOLESTEROL INCREASED
     Dosage: 40 MG
     Route: 048
  3. FLUOXETINE [Concomitant]
     Indication: DEPRESSION
     Dosage: 40 MG
     Route: 048
  4. GLIPIZIDE [Concomitant]
     Indication: TYPE 2 DIABETES MELLITUS
     Dosage: 5 MG
     Route: 048
  5. LEVOTHYROXINE [Concomitant]
     Indication: HYPOTHYROIDISM
     Dosage: 50 MCG
     Route: 048
  6. METFORMIN [Concomitant]
     Indication: TYPE 2 DIABETES MELLITUS
     Dosage: 1000 MG
     Route: 048
  7. LOMOTIL [Concomitant]
     Indication: DIARRHOEA
     Route: 048
  8. PROMETHAZINE [Concomitant]
     Indication: NAUSEA
     Dosage: 25 MG
     Route: 048
  9. PROMETHAZINE [Concomitant]
     Indication: VOMITING
  10. ZOFRAN [Concomitant]
     Indication: NAUSEA
     Dosage: 4 MG
     Route: 048
  11. ZOFRAN [Concomitant]
     Indication: VOMITING
  12. OXYCODONE [Concomitant]
     Indication: PAIN
     Dosage: 10 MG
     Route: 048
  13. ZYPREXA [Concomitant]
     Indication: DEPRESSION
     Dosage: 10 MG
     Route: 048

REACTIONS (6)
  - Abdominal discomfort [Recovered/Resolved]
  - Respiratory failure [Recovered/Resolved]
  - Alkalosis hypokalaemic [Recovered/Resolved]
  - Diarrhoea [Recovered/Resolved]
  - Renal failure [Recovered/Resolved]
  - Interstitial lung disease [Recovered/Resolved]
